FAERS Safety Report 8777957 (Version 2)
Quarter: 2013Q2

REPORT INFORMATION
  Report Type: Spontaneous
  Country: US (occurrence: US)
  Receive Date: 20120912
  Receipt Date: 20130503
  Transmission Date: 20140414
  Serious: Yes (Hospitalization)
  Sender: FDA-Public Use
  Company Number: PHHY2012US040338

PATIENT
  Age: 44 Year
  Sex: Male

DRUGS (1)
  1. HEPARIN [Suspect]
     Indication: THROMBOSIS PROPHYLAXIS
     Route: 041

REACTIONS (10)
  - Sepsis [Recovered/Resolved]
  - Clostridium difficile infection [Recovered/Resolved]
  - Leukocytosis [Unknown]
  - Heparin-induced thrombocytopenia [Unknown]
  - Pyrexia [Recovered/Resolved]
  - Adrenal haemorrhage [Recovering/Resolving]
  - Adrenal insufficiency [Recovered/Resolved]
  - Tachycardia [Recovered/Resolved]
  - Abdominal pain [Recovered/Resolved]
  - Hypotension [Recovered/Resolved]
